FAERS Safety Report 8964655 (Version 1)
Quarter: 2012Q4

REPORT INFORMATION
  Report Type: 
  Country: AU (occurrence: AU)
  Receive Date: 20121213
  Receipt Date: 20121213
  Transmission Date: 20130627
  Serious: Yes (Other)
  Sender: FDA-Public Use
  Company Number: AU-ROCHE-1149937

PATIENT
  Age: 56 Year
  Sex: Male
  Weight: 72 kg

DRUGS (3)
  1. ZELBORAF [Suspect]
     Indication: PRODUCT USED FOR UNKNOWN INDICATION
     Route: 048
     Dates: start: 20120524, end: 20120719
  2. ZELBORAF [Suspect]
     Indication: METASTATIC MALIGNANT MELANOMA
     Route: 048
     Dates: start: 20120719, end: 20120816
  3. ZELBORAF [Suspect]
     Route: 048
     Dates: start: 20120816, end: 20120913

REACTIONS (8)
  - Squamous cell carcinoma [Unknown]
  - Keratoacanthoma [Unknown]
  - Squamous cell carcinoma [Recovered/Resolved]
  - Skin papilloma [Recovered/Resolved]
  - Malignant melanoma in situ [Recovered/Resolved]
  - Decreased appetite [Recovered/Resolved]
  - Nausea [Recovered/Resolved]
  - Disease progression [Unknown]
